FAERS Safety Report 18773085 (Version 1)
Quarter: 2021Q1

REPORT INFORMATION
  Report Type: Spontaneous
  Country: US (occurrence: US)
  Receive Date: 20210121
  Receipt Date: 20210121
  Transmission Date: 20210419
  Serious: Yes (Disabling)
  Sender: FDA-Public Use
  Company Number: None

PATIENT
  Age: 56 Year
  Sex: Female
  Weight: 110.7 kg

DRUGS (9)
  1. BUPRENORPHINE AND NALOXONE [Suspect]
     Active Substance: BUPRENORPHINE HYDROCHLORIDE\NALOXONE HYDROCHLORIDE
     Indication: PAIN
     Dosage: ?          QUANTITY:1.5 1.5 FILMS BID;?
     Route: 060
     Dates: start: 20190502, end: 20201205
  2. CLARITIN [Concomitant]
     Active Substance: LORATADINE
  3. ATORVASTATIN [Concomitant]
     Active Substance: ATORVASTATIN
  4. AMERGE [Concomitant]
     Active Substance: NARATRIPTAN HYDROCHLORIDE
  5. TRINTELLIX [Concomitant]
     Active Substance: VORTIOXETINE HYDROBROMIDE
  6. CELEBREX [Concomitant]
     Active Substance: CELECOXIB
  7. SIENNA [Concomitant]
  8. LYRICA [Concomitant]
     Active Substance: PREGABALIN
  9. NORCO [Concomitant]
     Active Substance: ACETAMINOPHEN\HYDROCODONE BITARTRATE

REACTIONS (8)
  - Palpitations [None]
  - Extrasystoles [None]
  - Dyspnoea [None]
  - Insomnia [None]
  - Libido decreased [None]
  - Skin discolouration [None]
  - Condition aggravated [None]
  - Hypoaesthesia [None]

NARRATIVE: CASE EVENT DATE: 20201203
